FAERS Safety Report 8437514-3 (Version None)
Quarter: 2012Q2

REPORT INFORMATION
  Report Type: 
  Country: None (occurrence: None)
  Receive Date: 20120614
  Receipt Date: 20120416
  Transmission Date: 20120825
  Serious: No
  Sender: FDA-Public Use
  Company Number: US-AMGEN-USASP2012023853

PATIENT
  Age: 77 Year
  Sex: Female

DRUGS (2)
  1. PROLIA [Suspect]
     Indication: OSTEOPOROSIS POSTMENOPAUSAL
     Dosage: 60 MG, Q6MO
     Dates: start: 20120103
  2. PREDNISONE TAB [Concomitant]

REACTIONS (5)
  - WEIGHT DECREASED [None]
  - BONE PAIN [None]
  - HEADACHE [None]
  - VITAL CAPACITY DECREASED [None]
  - FATIGUE [None]
